FAERS Safety Report 21673992 (Version 1)
Quarter: 2022Q4

REPORT INFORMATION
  Report Type: Spontaneous
  Country: GB (occurrence: GB)
  Receive Date: 20221202
  Receipt Date: 20221202
  Transmission Date: 20230112
  Serious: Yes (Other)
  Sender: FDA-Public Use
  Company Number: GB-RP-024246

PATIENT
  Age: 63 Year
  Sex: Male

DRUGS (35)
  1. FLUOXETINE [Suspect]
     Active Substance: FLUOXETINE HYDROCHLORIDE
     Indication: Depression
     Dosage: UNK(STARTED AND STOPPED IN SEPTEMBER 2015)
     Route: 065
     Dates: start: 201509, end: 201509
  2. LOFEPRAMINE [Suspect]
     Active Substance: LOFEPRAMINE
     Indication: Depression
     Dosage: 70 MILLIGRAM, QD(DEPRESSED AND ANXIOUS. STARTED AND STOPPED IN NOVEMBER 2014)
     Route: 065
     Dates: start: 201411, end: 201411
  3. LOFEPRAMINE [Suspect]
     Active Substance: LOFEPRAMINE
     Indication: Anxiety
  4. OLANZAPINE [Suspect]
     Active Substance: OLANZAPINE
     Indication: Depression
     Dosage: 10 MILLIGRAM(DEPRESSED AND ANXIOUS)
     Route: 065
     Dates: start: 201407, end: 201408
  5. OLANZAPINE [Suspect]
     Active Substance: OLANZAPINE
     Indication: Anxiety
     Dosage: 7.5 MILLIGRAM(DEPRESSED AND ANXIOUS)
     Route: 065
     Dates: start: 201410
  6. OLANZAPINE [Suspect]
     Active Substance: OLANZAPINE
     Indication: Mania
     Dosage: UNK(DEPRESSED AND ANXIOUS)
     Route: 065
     Dates: end: 201411
  7. OLANZAPINE [Suspect]
     Active Substance: OLANZAPINE
     Dosage: 10 MILLIGRAM(DEPRESSED AND ANXIOUS)
     Route: 065
     Dates: start: 201311, end: 201406
  8. OLANZAPINE [Suspect]
     Active Substance: OLANZAPINE
     Dosage: 10 MILLIGRAM(DEPRESSED AND ANXIOUS)
     Route: 065
     Dates: start: 201409
  9. OLANZAPINE [Suspect]
     Active Substance: OLANZAPINE
     Dosage: 5 MILLIGRAM, HS(NOCTE. FIRST EPISODE OF MANIA)
     Route: 065
     Dates: start: 201307
  10. PREGABALIN [Suspect]
     Active Substance: PREGABALIN
     Indication: Depression
     Dosage: 150 MILLIGRAM(DEPRESSED AND ANXIOUS; TIME INTERVAL: 0.33 D)
     Route: 065
     Dates: start: 201506
  11. PREGABALIN [Suspect]
     Active Substance: PREGABALIN
     Indication: Anxiety
     Dosage: UNK
     Route: 065
     Dates: start: 201410
  12. PREGABALIN [Suspect]
     Active Substance: PREGABALIN
     Dosage: 150 MILLIGRAM(DEPRESSED AND ANXIOUS; TIME INTERVAL: 0.33 D)
     Route: 065
     Dates: start: 201503, end: 201506
  13. PREGABALIN [Suspect]
     Active Substance: PREGABALIN
     Dosage: 150 MILLIGRAM(TIME INTERVAL: 0.33 D)
     Route: 065
     Dates: start: 201501, end: 201502
  14. PREGABALIN [Suspect]
     Active Substance: PREGABALIN
     Dosage: 150 MILLIGRAM(DEPRESSED AND ANXIOUS; TIME INTERVAL: 0.33 D)
     Route: 065
     Dates: start: 201601, end: 201703
  15. PREGABALIN [Suspect]
     Active Substance: PREGABALIN
     Dosage: 150 MILLIGRAM(DEPRESSED AND ANXIOUS; TIME INTERVAL: 0.33 D)
     Route: 065
     Dates: start: 201511
  16. PREGABALIN [Suspect]
     Active Substance: PREGABALIN
     Dosage: 150 MILLIGRAM(TIME INTERVAL: 0.33 D)
     Route: 065
     Dates: start: 201509
  17. SERTRALINE [Suspect]
     Active Substance: SERTRALINE HYDROCHLORIDE
     Indication: Depression
     Dosage: 200 MILLIGRAM, QD
     Route: 065
     Dates: start: 201407, end: 201408
  18. SERTRALINE [Suspect]
     Active Substance: SERTRALINE HYDROCHLORIDE
     Indication: Anxiety
  19. VENLAFAXINE [Suspect]
     Active Substance: VENLAFAXINE HYDROCHLORIDE
     Indication: Depression
     Dosage: 75 MILLIGRAM, BID
     Route: 065
     Dates: start: 201409
  20. VENLAFAXINE [Suspect]
     Active Substance: VENLAFAXINE HYDROCHLORIDE
     Indication: Anxiety
  21. ARIPIPRAZOLE [Concomitant]
     Active Substance: ARIPIPRAZOLE
     Indication: Depression
     Dosage: 5 MILLIGRAM, QD
     Route: 065
  22. DIAZEPAM [Concomitant]
     Active Substance: DIAZEPAM
     Indication: Depression
     Dosage: 5 MILLIGRAM, QD(DEPRESSED AND ANXIOUS)
     Route: 065
     Dates: start: 201503, end: 201506
  23. DIAZEPAM [Concomitant]
     Active Substance: DIAZEPAM
     Indication: Anxiety
     Dosage: 5 MILLIGRAM, QD(DEPRESSED AND ANXIOUS.STOPPED BY THE PATIENT HIMSELF (IMPROVEMENT IN ANXIETY))
     Route: 065
     Dates: start: 201601, end: 201703
  24. DIAZEPAM [Concomitant]
     Active Substance: DIAZEPAM
     Dosage: 5 MILLIGRAM, QW(DEPRESSED AND ANXIOUS)
     Route: 065
     Dates: start: 201511
  25. DIAZEPAM [Concomitant]
     Active Substance: DIAZEPAM
     Dosage: 5 MILLIGRAM, QD(DEPRESSED AND ANXIOUS)
     Route: 065
     Dates: start: 201509
  26. DIAZEPAM [Concomitant]
     Active Substance: DIAZEPAM
     Dosage: 5 MILLIGRAM, PRN(PRN ORAL FOR ANXIETY)
     Route: 048
     Dates: start: 201411
  27. DIAZEPAM [Concomitant]
     Active Substance: DIAZEPAM
     Dosage: 5 MILLIGRAM, QD(DEPRESSED AND ANXIOUS)
     Route: 065
     Dates: start: 201501, end: 201502
  28. DIAZEPAM [Concomitant]
     Active Substance: DIAZEPAM
     Dosage: 5 MILLIGRAM, QD(DEPRESSED AND ANXIOUS)
     Route: 065
     Dates: start: 201506
  29. LAMOTRIGINE [Concomitant]
     Active Substance: LAMOTRIGINE
     Dosage: UNK(STARTED AND STOPPED IN NOVEMBER 2015)
     Route: 065
     Dates: start: 201511, end: 201511
  30. MIRTAZAPINE [Concomitant]
     Active Substance: MIRTAZAPINE
     Indication: Depression
     Dosage: 45 MILLIGRAM
     Route: 065
     Dates: start: 201704
  31. MIRTAZAPINE [Concomitant]
     Active Substance: MIRTAZAPINE
     Dosage: 30 MILLIGRAM
     Route: 065
     Dates: start: 201503
  32. QUETIAPINE [Concomitant]
     Active Substance: QUETIAPINE
     Indication: Depression
     Dosage: 100 MILLIGRAM, BID (DEPRESSED AND ANXIOUS)
     Route: 065
     Dates: start: 201503, end: 201506
  33. QUETIAPINE [Concomitant]
     Active Substance: QUETIAPINE
     Indication: Anxiety
     Dosage: 100 MILLIGRAM, BID (DEPRESSED AND ANXIOUS)
     Route: 065
     Dates: start: 201501, end: 201502
  34. VORTIOXETINE [Concomitant]
     Active Substance: VORTIOXETINE
     Indication: Depression
     Dosage: 5 MILLIGRAM, QD(VORTIOXETINE 5 MG OD STARTED + TITRATED TO 15 MG OD)
     Route: 065
     Dates: start: 201704
  35. VORTIOXETINE [Concomitant]
     Active Substance: VORTIOXETINE
     Dosage: 15 MILLIGRAM, QD(VORTIOXETINE 5 MG OD STARTED + TITRATED TO 15 MG OD)
     Route: 065

REACTIONS (2)
  - Inappropriate antidiuretic hormone secretion [Not Recovered/Not Resolved]
  - Hyponatraemia [Not Recovered/Not Resolved]
